FAERS Safety Report 5318654-4 (Version None)
Quarter: 2007Q2

REPORT INFORMATION
  Report Type: 
  Country: None (occurrence: None)
  Receive Date: 20070508
  Receipt Date: 20070430
  Transmission Date: 20071010
  Serious: Yes (Other)
  Sender: FDA-Public Use
  Company Number: PHEH2007US06637

PATIENT
  Sex: Female

DRUGS (1)
  1. ZELNORM [Suspect]
     Indication: CONSTIPATION
     Dates: start: 20070301, end: 20070401

REACTIONS (4)
  - CHEST PAIN [None]
  - GALLBLADDER DISORDER [None]
  - GALLBLADDER OPERATION [None]
  - PAIN IN EXTREMITY [None]
